FAERS Safety Report 6554126-7 (Version None)
Quarter: 2010Q1

REPORT INFORMATION
  Report Type: 
  Country: None (occurrence: None)
  Receive Date: 20100127
  Receipt Date: 20100118
  Transmission Date: 20100710
  Serious: Yes (Hospitalization, Other)
  Sender: FDA-Public Use
  Company Number: FR-BRISTOL-MYERS SQUIBB COMPANY-14945612

PATIENT
  Age: 81 Year
  Sex: Female

DRUGS (8)
  1. GLUCOPHAGE [Suspect]
     Indication: TYPE 2 DIABETES MELLITUS
     Dosage: 1 DOSAGEFORM, 3 TIMES IN 1 DAY. TOTAL-3 DOSAGE FORM
     Route: 048
     Dates: end: 20090928
  2. CORDARONE [Concomitant]
  3. HEMIGOXINE NATIVELLE [Concomitant]
  4. LASILIX [Concomitant]
     Indication: RENAL FAILURE
  5. NEXIUM [Concomitant]
  6. TOPALGIC [Concomitant]
  7. KARDEGIC [Concomitant]
  8. PREVISCAN [Concomitant]

REACTIONS (4)
  - HYPERKALAEMIA [None]
  - LACTIC ACIDOSIS [None]
  - OVERDOSE [None]
  - RENAL FAILURE ACUTE [None]
